FAERS Safety Report 14917651 (Version 1)
Quarter: 2018Q2

REPORT INFORMATION
  Report Type: Spontaneous
  Country: US (occurrence: US)
  Receive Date: 20180521
  Receipt Date: 20180521
  Transmission Date: 20180711
  Serious: Yes (Other)
  Sender: FDA-Public Use
  Company Number: US-SHILPA MEDICARE LIMITED-SML-US-2018-00027

PATIENT
  Age: 15 Year
  Sex: Male

DRUGS (5)
  1. AZACITIDINE, UNKNOWN [Suspect]
     Active Substance: AZACITIDINE
     Indication: ACUTE MYELOID LEUKAEMIA
     Dosage: 2 CYCLES OF AZACITIDINE FOLLOWED BY DONOR LYMPHOCYTE INFUSION (DLI)
  2. SORAFENIB [Suspect]
     Active Substance: SORAFENIB
     Indication: ACUTE MYELOID LEUKAEMIA
     Dosage: ON DAY +212
  3. CYCLOPHOSPHAMIDE. [Suspect]
     Active Substance: CYCLOPHOSPHAMIDE
     Indication: ACUTE MYELOID LEUKAEMIA
  4. DONOR LYMPHOCYTE INFUSION [Suspect]
     Active Substance: LYMPHOCYTES
     Indication: ACUTE MYELOID LEUKAEMIA
     Dosage: ON DAY +246
  5. BUSULFAN. [Suspect]
     Active Substance: BUSULFAN
     Indication: ACUTE MYELOID LEUKAEMIA

REACTIONS (7)
  - Acute graft versus host disease in skin [Recovered/Resolved]
  - Febrile neutropenia [Recovered/Resolved]
  - Pneumonia [Unknown]
  - Clostridium difficile colitis [Unknown]
  - Varicella zoster virus infection [Unknown]
  - Metapneumovirus infection [Unknown]
  - Meningitis [Unknown]
